FAERS Safety Report 20441484 (Version 5)
Quarter: 2023Q1

REPORT INFORMATION
  Report Type: Spontaneous
  Country: FI (occurrence: FI)
  Receive Date: 20220208
  Receipt Date: 20230320
  Transmission Date: 20230418
  Serious: Yes (Death, Other)
  Sender: FDA-Public Use
  Company Number: FI-SA-SAC20220204001589

PATIENT
  Age: 46 Year
  Sex: Male

DRUGS (12)
  1. FABRAZYME [Suspect]
     Active Substance: AGALSIDASE BETA
     Indication: Product used for unknown indication
     Dosage: UNK
     Route: 065
     Dates: start: 2011
  2. FABRAZYME [Suspect]
     Active Substance: AGALSIDASE BETA
     Dosage: 80 MG, QOW
     Route: 041
  3. METOPROLOL SUCCINATE [Concomitant]
     Active Substance: METOPROLOL SUCCINATE
     Dosage: 1 TABLET ONCE A DAY
     Route: 048
  4. ELIQUIS [Concomitant]
     Active Substance: APIXABAN
     Dosage: 1 TABLET TWICE A DAY
     Route: 048
  5. ROSUVASTATIN [Concomitant]
     Active Substance: ROSUVASTATIN
     Dosage: 1 TABLET ONCE A DAY
     Route: 048
  6. SPIRONOLACTONE [Concomitant]
     Active Substance: SPIRONOLACTONE
     Dosage: 1 TABLET ONCE A DAY
     Route: 048
  7. VALSARTAN [Concomitant]
     Active Substance: VALSARTAN
     Dosage: 1 TABLET TWICE A DAY
     Route: 048
  8. LERCANIDIPINE HYDROCHLORIDE [Concomitant]
     Active Substance: LERCANIDIPINE HYDROCHLORIDE
     Dosage: 1 TABLET ONCE A DAY
     Route: 048
  9. PANADOL FORTE [PARACETAMOL] [Concomitant]
     Dosage: 1 G (MAX. 3 G/DAY) AS NEEDED
  10. CHOLECALCIFEROL [Concomitant]
     Active Substance: CHOLECALCIFEROL
     Dosage: 1 TABLET ONCE A DAY
     Route: 048
  11. CHOLECALCIFEROL [Concomitant]
     Active Substance: CHOLECALCIFEROL
     Dosage: 20 MICROGRAMS IN THE SUMMER
     Route: 048
  12. MELATON [MELATONIN] [Concomitant]
     Dosage: 1 TABLET AS NEEDED
     Route: 048

REACTIONS (9)
  - Sudden cardiac death [Fatal]
  - Illness [Fatal]
  - Fabry^s disease [Fatal]
  - Cardiomyopathy [Fatal]
  - Cardiac disorder [Fatal]
  - Arrhythmia [Fatal]
  - Ventricular tachycardia [Fatal]
  - Atrial fibrillation [Unknown]
  - Hypokalaemia [Unknown]

NARRATIVE: CASE EVENT DATE: 20160101
